FAERS Safety Report 13705911 (Version 1)
Quarter: 2017Q2

REPORT INFORMATION
  Report Type: Spontaneous
  Country: US (occurrence: US)
  Receive Date: 20170630
  Receipt Date: 20170630
  Transmission Date: 20170830
  Serious: No
  Sender: FDA-Public Use
  Company Number: US-PFIZER INC-2017283943

PATIENT
  Age: 84 Year
  Sex: Female
  Weight: 80.2 kg

DRUGS (3)
  1. DENOSUMAB [Concomitant]
     Active Substance: DENOSUMAB
     Indication: BONE CANCER
     Dosage: 2 SHOTS AT A TIME EVERY 2 WEEKS
  2. IBRANCE [Suspect]
     Active Substance: PALBOCICLIB
     Indication: BONE CANCER
     Dosage: 75 MG, 1X/DAY
     Route: 048
     Dates: start: 20170607
  3. FULVESTRANT [Concomitant]
     Active Substance: FULVESTRANT
     Indication: BONE CANCER
     Dosage: SHOT IN THE ARM

REACTIONS (2)
  - Product use in unapproved indication [Unknown]
  - Cough [Unknown]

NARRATIVE: CASE EVENT DATE: 201706
